FAERS Safety Report 19972511 (Version 4)
Quarter: 2021Q4

REPORT INFORMATION
  Report Type: Spontaneous
  Country: TR (occurrence: TR)
  Receive Date: 20211020
  Receipt Date: 20211229
  Transmission Date: 20220303
  Serious: Yes (Hospitalization)
  Sender: FDA-Public Use
  Company Number: TR-BIOGEN-2021BI01058473

PATIENT
  Age: 25 Year
  Sex: Female
  Weight: 50 kg

DRUGS (1)
  1. TYSABRI [Suspect]
     Active Substance: NATALIZUMAB
     Indication: Multiple sclerosis relapse
     Dosage: THE DOSE USED IS A TOTAL OF 11 DOSES
     Route: 042
     Dates: start: 20200831, end: 20210810

REACTIONS (1)
  - Necrotising retinitis [Recovered/Resolved]

NARRATIVE: CASE EVENT DATE: 20210912
